FAERS Safety Report 15682175 (Version 2)
Quarter: 2019Q1

REPORT INFORMATION
  Report Type: Spontaneous
  Country: US (occurrence: US)
  Receive Date: 20181203
  Receipt Date: 20190130
  Transmission Date: 20190417
  Serious: Yes (Other)
  Sender: FDA-Public Use
  Company Number: US-SEPTODONT-201804867

PATIENT
  Age: 64 Year
  Sex: Female

DRUGS (1)
  1. LIDOCAINE CARTRIDGE 2% W/EPI [Suspect]
     Active Substance: EPINEPHRINE\LIDOCAINE
     Indication: NASAL SEPTAL OPERATION
     Route: 004
     Dates: start: 20181030, end: 20181030

REACTIONS (2)
  - Off label use [Unknown]
  - Haemorrhage [Recovered/Resolved]

NARRATIVE: CASE EVENT DATE: 20181030
